FAERS Safety Report 24734952 (Version 2)
Quarter: 2025Q4

REPORT INFORMATION
  Report Type: Spontaneous
  Country: AU (occurrence: AU)
  Receive Date: 20241215
  Receipt Date: 20251003
  Transmission Date: 20260117
  Serious: Yes (Death, Hospitalization, Other)
  Sender: JOHNSON AND JOHNSON
  Company Number: AU-JNJFOC-20241220742

PATIENT
  Age: 79 Year
  Sex: Female

DRUGS (1)
  1. STELARA [Suspect]
     Active Substance: USTEKINUMAB
     Indication: Crohn^s disease
     Route: 058
     Dates: start: 2020

REACTIONS (16)
  - Interstitial lung disease [Fatal]
  - Pneumocystis jirovecii pneumonia [Fatal]
  - Respiratory failure [Fatal]
  - Bronchiectasis [Unknown]
  - Condition aggravated [Unknown]
  - Dyspnoea [Unknown]
  - Hypoxia [Unknown]
  - Nausea [Unknown]
  - Polyuria [Unknown]
  - Presyncope [Unknown]
  - Tachypnoea [Unknown]
  - Pneumonia [Unknown]
  - Herpes simplex [Unknown]
  - C-reactive protein increased [Unknown]
  - Influenza B virus test positive [Unknown]
  - White blood cell count increased [Unknown]

NARRATIVE: CASE EVENT DATE: 20241103
